FAERS Safety Report 4722440-3 (Version None)
Quarter: 2005Q3

REPORT INFORMATION
  Report Type: 
  Country: None (occurrence: None)
  Receive Date: 20050722
  Receipt Date: 20050418
  Transmission Date: 20060218
  Serious: No
  Sender: FDA-Public Use
  Company Number: US-GLAXOSMITHKLINE-A0554902A

PATIENT
  Age: 78 Year
  Sex: Female

DRUGS (3)
  1. AVANDIA [Suspect]
     Dosage: 2MG TWICE PER DAY
     Route: 048
     Dates: start: 20050401
  2. METFORMIN [Concomitant]
     Route: 065
  3. COZAAR [Concomitant]
     Route: 065

REACTIONS (3)
  - BLOOD CAFFEINE INCREASED [None]
  - HEART RATE INCREASED [None]
  - HYPERGLYCAEMIA [None]
